FAERS Safety Report 16680113 (Version 7)
Quarter: 2020Q2

REPORT INFORMATION
  Report Type: Report from Study
  Country: US (occurrence: US)
  Receive Date: 20190807
  Receipt Date: 20200625
  Transmission Date: 20200713
  Serious: Yes (Hospitalization, Other)
  Sender: FDA-Public Use
  Company Number: US-ACTELION-A-US2019-193924

PATIENT
  Age: 50 Year
  Sex: Female
  Weight: 84.35 kg

DRUGS (2)
  1. OPSUMIT [Suspect]
     Active Substance: MACITENTAN
     Indication: PULMONARY ARTERIAL HYPERTENSION
     Dosage: 10 MG, QD
     Route: 048
     Dates: start: 20190423
  2. TYVASO [Suspect]
     Active Substance: TREPROSTINIL
     Indication: PRODUCT USED FOR UNKNOWN INDICATION
     Dosage: 4 BREATHS 4 TIMES A DAY
     Route: 065

REACTIONS (17)
  - Pulmonary arterial hypertension [Not Recovered/Not Resolved]
  - Hypotension [Recovered/Resolved]
  - Fluid retention [Not Recovered/Not Resolved]
  - Vaginal lesion [Unknown]
  - Hyperglycaemia [Unknown]
  - Dyspnoea [Recovering/Resolving]
  - Hospitalisation [Unknown]
  - Myocardial infarction [Unknown]
  - Mobility decreased [Not Recovered/Not Resolved]
  - Blood glucose decreased [Recovered/Resolved]
  - Dialysis [Not Recovered/Not Resolved]
  - Condition aggravated [Not Recovered/Not Resolved]
  - Oedema peripheral [Unknown]
  - Oedema [Not Recovered/Not Resolved]
  - Dizziness [Unknown]
  - Diarrhoea [Unknown]
  - Cough [Unknown]

NARRATIVE: CASE EVENT DATE: 201907
